FAERS Safety Report 6909748-8 (Version None)
Quarter: 2010Q3

REPORT INFORMATION
  Report Type: 
  Country: None (occurrence: None)
  Receive Date: 20100806
  Receipt Date: 20100729
  Transmission Date: 20110219
  Serious: Yes (Hospitalization)
  Sender: FDA-Public Use
  Company Number: US-BIOGENIDEC-2010BI026054

PATIENT
  Age: 20 Year
  Sex: Male

DRUGS (1)
  1. TYSABRI [Suspect]
     Indication: MULTIPLE SCLEROSIS
     Route: 042
     Dates: start: 20071112

REACTIONS (15)
  - ABDOMINAL DISCOMFORT [None]
  - APHASIA [None]
  - BLOOD PRESSURE ABNORMAL [None]
  - CHILLS [None]
  - DYSGRAPHIA [None]
  - DYSKINESIA [None]
  - FATIGUE [None]
  - HEADACHE [None]
  - HEMIPARESIS [None]
  - MEMORY IMPAIRMENT [None]
  - MENTAL IMPAIRMENT [None]
  - MUSCLE SPASMS [None]
  - OPTIC NEURITIS [None]
  - PAIN [None]
  - THERAPEUTIC RESPONSE DELAYED [None]
